FAERS Safety Report 12184860 (Version 3)
Quarter: 2016Q2

REPORT INFORMATION
  Report Type: Spontaneous
  Country: GB (occurrence: GB)
  Receive Date: 20160316
  Receipt Date: 20160425
  Transmission Date: 20160815
  Serious: Yes (Other)
  Sender: FDA-Public Use
  Company Number: GB-ACTAVIS-2016-04970

PATIENT
  Age: 58 Year
  Sex: Female

DRUGS (107)
  1. LATANOPROST. [Suspect]
     Active Substance: LATANOPROST
     Dosage: UNK UNK, QPM; 01 DROP AT NIGHT IN BOTH EYES
     Route: 065
     Dates: start: 20071001
  2. LATANOPROST. [Suspect]
     Active Substance: LATANOPROST
     Dosage: UNK UNK, QPM; 01 DROP AT NIGHT IN BOTH EYES
     Route: 065
     Dates: start: 20060725
  3. LATANOPROST. [Suspect]
     Active Substance: LATANOPROST
     Dosage: UNK UNK, QPM; 01 DROP AT NIGHT IN BOTH EYES
     Route: 065
     Dates: start: 20060515
  4. CLIMESSE [Suspect]
     Active Substance: ESTRADIOL VALERATE\NORETHINDRONE
     Dosage: UNK UNK, DAILY
     Route: 048
     Dates: start: 20050706
  5. CLIMESSE [Suspect]
     Active Substance: ESTRADIOL VALERATE\NORETHINDRONE
     Dosage: UNK UNK, DAILY
     Route: 048
     Dates: start: 20030210
  6. XALACOM [Suspect]
     Active Substance: LATANOPROST\TIMOLOL MALEATE
     Dosage: UNK UNK, QPM; TO RIGHT EYE AT NIGHT (2.5 ML)
     Route: 065
     Dates: start: 20120327
  7. XALACOM [Suspect]
     Active Substance: LATANOPROST\TIMOLOL MALEATE
     Dosage: UNK UNK, QPM; TO RIGHT EYE AT NIGHT (2.5 ML)
     Route: 065
     Dates: start: 20151116
  8. XALACOM [Suspect]
     Active Substance: LATANOPROST\TIMOLOL MALEATE
     Dosage: UNK UNK, QPM; TO RIGHT EYE AT NIGHT (2.5 ML)
     Route: 065
     Dates: start: 20140617
  9. XALACOM [Suspect]
     Active Substance: LATANOPROST\TIMOLOL MALEATE
     Dosage: UNK UNK, QPM; TO RIGHT EYE AT NIGHT (2.5 ML)
     Route: 065
     Dates: start: 20150305
  10. XALACOM [Suspect]
     Active Substance: LATANOPROST\TIMOLOL MALEATE
     Dosage: UNK UNK, QPM; TO RIGHT EYE AT NIGHT (2.5 ML)
     Route: 065
     Dates: start: 20141020
  11. XALACOM [Suspect]
     Active Substance: LATANOPROST\TIMOLOL MALEATE
     Dosage: UNK UNK, QPM; TO RIGHT EYE AT NIGHT (2.5 ML)
     Route: 065
     Dates: start: 20121015
  12. XALACOM [Suspect]
     Active Substance: LATANOPROST\TIMOLOL MALEATE
     Dosage: UNK UNK, QPM; TO RIGHT EYE AT NIGHT (2.5 ML)
     Route: 065
     Dates: start: 20120716
  13. XALACOM [Suspect]
     Active Substance: LATANOPROST\TIMOLOL MALEATE
     Dosage: UNK UNK, QPM; TO RIGHT EYE AT NIGHT (2.5 ML)
     Route: 065
     Dates: start: 20120917
  14. XALACOM [Suspect]
     Active Substance: LATANOPROST\TIMOLOL MALEATE
     Dosage: UNK UNK, QPM; TO RIGHT EYE AT NIGHT (2.5 ML)
     Route: 065
     Dates: start: 20140812
  15. LATANOPROST. [Suspect]
     Active Substance: LATANOPROST
     Indication: PRODUCT USED FOR UNKNOWN INDICATION
     Dosage: UNK UNK, QPM; 01 DROP AT NIGHT IN BOTH EYES
     Route: 065
     Dates: start: 20080108
  16. CLIMESSE [Suspect]
     Active Substance: ESTRADIOL VALERATE\NORETHINDRONE
     Dosage: UNK UNK, DAILY
     Route: 048
     Dates: start: 20110707
  17. CLIMESSE [Suspect]
     Active Substance: ESTRADIOL VALERATE\NORETHINDRONE
     Dosage: UNK UNK, DAILY
     Route: 048
     Dates: start: 20050107
  18. CLIMESSE [Suspect]
     Active Substance: ESTRADIOL VALERATE\NORETHINDRONE
     Dosage: UNK UNK, DAILY
     Route: 048
     Dates: start: 20020902
  19. CLIMESSE [Suspect]
     Active Substance: ESTRADIOL VALERATE\NORETHINDRONE
     Dosage: UNK UNK, DAILY
     Route: 048
     Dates: start: 20071018
  20. CLIMESSE [Suspect]
     Active Substance: ESTRADIOL VALERATE\NORETHINDRONE
     Dosage: UNK
     Route: 048
     Dates: start: 20131210
  21. CLIMESSE [Suspect]
     Active Substance: ESTRADIOL VALERATE\NORETHINDRONE
     Dosage: UNK UNK, DAILY
     Route: 048
     Dates: start: 20100811
  22. XALACOM [Suspect]
     Active Substance: LATANOPROST\TIMOLOL MALEATE
     Dosage: UNK UNK, QPM; TO RIGHT EYE AT NIGHT (2.5 ML)
     Route: 065
     Dates: start: 20120131
  23. XALACOM [Suspect]
     Active Substance: LATANOPROST\TIMOLOL MALEATE
     Dosage: UNK UNK, QPM; TO RIGHT EYE AT NIGHT (2.5 ML)
     Route: 065
     Dates: start: 20140425
  24. XALACOM [Suspect]
     Active Substance: LATANOPROST\TIMOLOL MALEATE
     Dosage: UNK UNK, QPM; TO RIGHT EYE AT NIGHT (2.5 ML)
     Route: 065
     Dates: start: 20140522
  25. XALACOM [Suspect]
     Active Substance: LATANOPROST\TIMOLOL MALEATE
     Dosage: UNK UNK, QPM; TO RIGHT EYE AT NIGHT (2.5 ML)
     Route: 065
     Dates: start: 20151230
  26. XALACOM [Suspect]
     Active Substance: LATANOPROST\TIMOLOL MALEATE
     Dosage: UNK UNK, QPM; TO RIGHT EYE AT NIGHT (2.5 ML)
     Route: 065
     Dates: start: 20110512
  27. XALACOM [Suspect]
     Active Substance: LATANOPROST\TIMOLOL MALEATE
     Dosage: UNK UNK, QPM; TO RIGHT EYE AT NIGHT (2.5 ML)
     Route: 065
     Dates: start: 20120823
  28. XALACOM [Suspect]
     Active Substance: LATANOPROST\TIMOLOL MALEATE
     Dosage: UNK UNK, QPM; TO RIGHT EYE AT NIGHT (2.5 ML)
     Route: 065
     Dates: start: 20140714
  29. LATANOPROST. [Suspect]
     Active Substance: LATANOPROST
     Dosage: UNK UNK, QPM; 01 DROP AT NIGHT IN BOTH EYES
     Route: 065
     Dates: start: 20050929
  30. LATANOPROST. [Suspect]
     Active Substance: LATANOPROST
     Dosage: UNK UNK, QPM; 01 DROP AT NIGHT IN BOTH EYES
     Route: 065
     Dates: start: 20070220
  31. CLIMESSE [Suspect]
     Active Substance: ESTRADIOL VALERATE\NORETHINDRONE
     Dosage: UNK
     Route: 048
     Dates: start: 20140210
  32. CLIMESSE [Suspect]
     Active Substance: ESTRADIOL VALERATE\NORETHINDRONE
     Dosage: UNK UNK, DAILY
     Route: 048
     Dates: start: 20100218
  33. TRAVATAN [Suspect]
     Active Substance: TRAVOPROST
     Indication: PRODUCT USED FOR UNKNOWN INDICATION
     Dosage: 1 DF, QPM; AT NIGHT IN BOTH EYES
     Route: 047
     Dates: start: 20100802, end: 20101119
  34. XALACOM [Suspect]
     Active Substance: LATANOPROST\TIMOLOL MALEATE
     Dosage: UNK UNK, QPM; TO RIGHT EYE AT NIGHT (2.5 ML)
     Route: 065
     Dates: start: 20151006
  35. XALACOM [Suspect]
     Active Substance: LATANOPROST\TIMOLOL MALEATE
     Dosage: UNK UNK, QPM; TO RIGHT EYE AT NIGHT (2.5 ML)
     Route: 065
     Dates: start: 20110426
  36. XALACOM [Suspect]
     Active Substance: LATANOPROST\TIMOLOL MALEATE
     Dosage: UNK UNK, QPM; TO RIGHT EYE AT NIGHT (2.5 ML)
     Route: 065
     Dates: start: 20120224
  37. XALACOM [Suspect]
     Active Substance: LATANOPROST\TIMOLOL MALEATE
     Dosage: UNK UNK, QPM; TO RIGHT EYE AT NIGHT (2.5 ML)
     Route: 065
     Dates: start: 20120525
  38. LATANOPROST. [Suspect]
     Active Substance: LATANOPROST
     Dosage: UNK UNK, QPM; 01 DROP AT NIGHT IN BOTH EYES
     Route: 065
     Dates: start: 20050623
  39. LATANOPROST. [Suspect]
     Active Substance: LATANOPROST
     Dosage: UNK UNK, QPM; 01 DROP AT NIGHT IN BOTH EYES
     Route: 065
     Dates: start: 20071122
  40. HYDROCORTISONE. [Suspect]
     Active Substance: HYDROCORTISONE
     Indication: PRODUCT USED FOR UNKNOWN INDICATION
     Dosage: 15 G, TID
     Route: 065
     Dates: start: 20020514
  41. CLIMESSE [Suspect]
     Active Substance: ESTRADIOL VALERATE\NORETHINDRONE
     Indication: HORMONE REPLACEMENT THERAPY
     Dosage: UNK UNK, DAILY
     Route: 048
     Dates: start: 20150401
  42. CLIMESSE [Suspect]
     Active Substance: ESTRADIOL VALERATE\NORETHINDRONE
     Dosage: UNK UNK, DAILY
     Route: 048
     Dates: start: 20121210
  43. XALACOM [Suspect]
     Active Substance: LATANOPROST\TIMOLOL MALEATE
     Dosage: UNK UNK, QPM; TO RIGHT EYE AT NIGHT (2.5 ML)
     Route: 065
     Dates: start: 20150331
  44. XALACOM [Suspect]
     Active Substance: LATANOPROST\TIMOLOL MALEATE
     Dosage: UNK UNK, QPM; TO RIGHT EYE AT NIGHT (2.5 ML)
     Route: 065
     Dates: start: 20141111, end: 20151116
  45. XALACOM [Suspect]
     Active Substance: LATANOPROST\TIMOLOL MALEATE
     Dosage: UNK UNK, QPM; TO RIGHT EYE AT NIGHT (2.5 ML)
     Route: 065
     Dates: start: 20110715
  46. XALACOM [Suspect]
     Active Substance: LATANOPROST\TIMOLOL MALEATE
     Dosage: UNK UNK, QPM; TO RIGHT EYE AT NIGHT (2.5 ML)
     Route: 065
     Dates: start: 20150819
  47. XALACOM [Suspect]
     Active Substance: LATANOPROST\TIMOLOL MALEATE
     Dosage: UNK UNK, QPM; TO RIGHT EYE AT NIGHT (2.5 ML)
     Route: 065
     Dates: start: 20141216
  48. XALACOM [Suspect]
     Active Substance: LATANOPROST\TIMOLOL MALEATE
     Dosage: UNK UNK, QPM; TO RIGHT EYE AT NIGHT (2.5 ML)
     Route: 065
     Dates: start: 20150114
  49. AMOXYCILLIN                        /00249601/ [Concomitant]
     Active Substance: AMOXICILLIN
     Dosage: UNK UNK, TID; (21 CAPSULES)
     Route: 065
     Dates: start: 20050107
  50. LATANOPROST. [Suspect]
     Active Substance: LATANOPROST
     Dosage: UNK UNK, QPM; 01 DROP AT NIGHT IN BOTH EYES
     Route: 065
     Dates: start: 20070418
  51. LATANOPROST. [Suspect]
     Active Substance: LATANOPROST
     Dosage: UNK UNK, QPM; 01 DROP AT NIGHT IN BOTH EYES
     Route: 065
     Dates: start: 20060901
  52. LATANOPROST. [Suspect]
     Active Substance: LATANOPROST
     Dosage: UNK UNK, QPM; 01 DROP AT NIGHT IN BOTH EYES
     Route: 065
     Dates: start: 20060120
  53. LATANOPROST. [Suspect]
     Active Substance: LATANOPROST
     Dosage: UNK UNK, QPM; 01 DROP AT NIGHT IN BOTH EYES
     Route: 065
     Dates: start: 20060119
  54. LATANOPROST. [Suspect]
     Active Substance: LATANOPROST
     Dosage: UNK UNK, QPM; 01 DROP AT NIGHT IN BOTH EYES
     Route: 065
     Dates: start: 20050725
  55. LATANOPROST. [Suspect]
     Active Substance: LATANOPROST
     Dosage: UNK UNK, QPM; 01 DROP AT NIGHT IN BOTH EYES
     Route: 065
     Dates: start: 20050414
  56. HYDROCORTISONE. [Suspect]
     Active Substance: HYDROCORTISONE
     Dosage: UNK
     Route: 065
     Dates: start: 20110107
  57. CLIMESSE [Suspect]
     Active Substance: ESTRADIOL VALERATE\NORETHINDRONE
     Dosage: UNK UNK, DAILY
     Route: 048
     Dates: start: 20010829
  58. CLIMESSE [Suspect]
     Active Substance: ESTRADIOL VALERATE\NORETHINDRONE
     Dosage: UNK UNK, DAILY
     Route: 048
     Dates: start: 20140826
  59. CLIMESSE [Suspect]
     Active Substance: ESTRADIOL VALERATE\NORETHINDRONE
     Dosage: UNK UNK, DAILY
     Route: 048
     Dates: start: 20090904
  60. XALACOM [Suspect]
     Active Substance: LATANOPROST\TIMOLOL MALEATE
     Indication: PRODUCT USED FOR UNKNOWN INDICATION
     Dosage: UNK UNK, QPM; TO RIGHT EYE AT NIGHT (2.5 ML)
     Route: 065
     Dates: start: 20151230, end: 20151230
  61. XALACOM [Suspect]
     Active Substance: LATANOPROST\TIMOLOL MALEATE
     Dosage: UNK UNK, QPM; TO RIGHT EYE AT NIGHT (2.5 ML)
     Route: 065
     Dates: start: 20150603
  62. XALACOM [Suspect]
     Active Substance: LATANOPROST\TIMOLOL MALEATE
     Dosage: UNK UNK, QPM; TO RIGHT EYE AT NIGHT (2.5 ML)
     Route: 065
     Dates: start: 20120423
  63. XALACOM [Suspect]
     Active Substance: LATANOPROST\TIMOLOL MALEATE
     Dosage: UNK UNK, QPM; TO RIGHT EYE AT NIGHT (2.5 ML)
     Route: 065
     Dates: start: 20141111, end: 20151116
  64. XALACOM [Suspect]
     Active Substance: LATANOPROST\TIMOLOL MALEATE
     Dosage: UNK UNK, QPM; TO RIGHT EYE AT NIGHT (2.5 ML)
     Route: 065
     Dates: start: 20120612
  65. XALACOM [Suspect]
     Active Substance: LATANOPROST\TIMOLOL MALEATE
     Dosage: UNK UNK, QPM; TO RIGHT EYE AT NIGHT (2.5 ML)
     Route: 065
     Dates: start: 20150114
  66. XALACOM [Suspect]
     Active Substance: LATANOPROST\TIMOLOL MALEATE
     Dosage: UNK UNK, QPM; TO RIGHT EYE AT NIGHT (2.5 ML)
     Route: 065
     Dates: start: 20120103
  67. XALACOM [Suspect]
     Active Substance: LATANOPROST\TIMOLOL MALEATE
     Dosage: UNK UNK, QPM; TO RIGHT EYE AT NIGHT (2.5 ML)
     Route: 065
     Dates: start: 20130111
  68. AMOXYCILLIN                        /00249601/ [Concomitant]
     Active Substance: AMOXICILLIN
     Indication: PRODUCT USED FOR UNKNOWN INDICATION
     Dosage: UNK UNK, TID; (15 CAPSULE)
     Route: 065
     Dates: start: 19900305
  69. LATANOPROST. [Suspect]
     Active Substance: LATANOPROST
     Dosage: UNK UNK, QPM; 01 DROP AT NIGHT IN BOTH EYES
     Route: 065
     Dates: start: 20070604
  70. LATANOPROST. [Suspect]
     Active Substance: LATANOPROST
     Dosage: UNK UNK, QPM; 01 DROP AT NIGHT IN BOTH EYES
     Route: 065
     Dates: start: 20051206
  71. LATANOPROST. [Suspect]
     Active Substance: LATANOPROST
     Dosage: UNK UNK, QPM; 01 DROP AT NIGHT IN BOTH EYES
     Route: 065
     Dates: start: 20061103
  72. LATANOPROST. [Suspect]
     Active Substance: LATANOPROST
     Dosage: UNK UNK, QPM;01 DROP AT NIGHT IN BOTH EYES
     Route: 065
     Dates: start: 20070110
  73. CLIMESSE [Suspect]
     Active Substance: ESTRADIOL VALERATE\NORETHINDRONE
     Dosage: UNK UNK, DAILY
     Route: 048
     Dates: start: 20080421
  74. CLIMESSE [Suspect]
     Active Substance: ESTRADIOL VALERATE\NORETHINDRONE
     Dosage: UNK UNK, DAILY
     Route: 048
     Dates: start: 20140325
  75. CLIMESSE [Suspect]
     Active Substance: ESTRADIOL VALERATE\NORETHINDRONE
     Dosage: UNK UNK, DAILY
     Route: 048
     Dates: start: 20061128
  76. CLIMESSE [Suspect]
     Active Substance: ESTRADIOL VALERATE\NORETHINDRONE
     Dosage: UNK UNK, DAILY
     Route: 048
     Dates: start: 20070509
  77. INFLUENZA VIRUS [Suspect]
     Active Substance: INFLUENZA VIRUS VACCINE
     Indication: IMMUNISATION
     Dosage: 0.5 ML, UNK
     Route: 065
     Dates: start: 20131028, end: 20131028
  78. XALACOM [Suspect]
     Active Substance: LATANOPROST\TIMOLOL MALEATE
     Dosage: UNK UNK, QPM; TO RIGHT EYE AT NIGHT (2.5 ML)
     Route: 065
     Dates: start: 20150714
  79. XALACOM [Suspect]
     Active Substance: LATANOPROST\TIMOLOL MALEATE
     Dosage: UNK UNK, QPM; TO RIGHT EYE AT NIGHT (2.5 ML)
     Route: 065
     Dates: start: 20050412, end: 20050607
  80. XALACOM [Suspect]
     Active Substance: LATANOPROST\TIMOLOL MALEATE
     Dosage: UNK UNK, QPM; TO RIGHT EYE AT NIGHT (2.5 ML)
     Route: 065
     Dates: start: 20121210
  81. XALACOM [Suspect]
     Active Substance: LATANOPROST\TIMOLOL MALEATE
     Dosage: UNK UNK, QPM; TO RIGHT EYE AT NIGHT (2.5 ML)
     Route: 065
     Dates: start: 20110616
  82. LATANOPROST. [Suspect]
     Active Substance: LATANOPROST
     Dosage: UNK UNK, QPM; 01 DROP AT NIGHT IN BOTH EYES
     Route: 065
     Dates: start: 20070813
  83. LATANOPROST. [Suspect]
     Active Substance: LATANOPROST
     Dosage: UNK UNK, QPM; 01 DROP AT NIGHT IN BOTH EYES
     Route: 065
     Dates: start: 20060306
  84. CLIMESSE [Suspect]
     Active Substance: ESTRADIOL VALERATE\NORETHINDRONE
     Dosage: UNK UNK, DAILY
     Route: 048
     Dates: start: 20090330
  85. CLIMESSE [Suspect]
     Active Substance: ESTRADIOL VALERATE\NORETHINDRONE
     Dosage: UNK UNK, DAILY
     Route: 048
     Dates: start: 20110119
  86. CLIMESSE [Suspect]
     Active Substance: ESTRADIOL VALERATE\NORETHINDRONE
     Dosage: UNK UNK, DAILY
     Route: 048
     Dates: start: 20060105
  87. CLIMESSE [Suspect]
     Active Substance: ESTRADIOL VALERATE\NORETHINDRONE
     Dosage: UNK UNK, DAILY
     Route: 048
     Dates: start: 20040210
  88. CLIMESSE [Suspect]
     Active Substance: ESTRADIOL VALERATE\NORETHINDRONE
     Dosage: UNK UNK, DAILY
     Route: 048
     Dates: start: 20000921
  89. CLIMESSE [Suspect]
     Active Substance: ESTRADIOL VALERATE\NORETHINDRONE
     Dosage: UNK UNK, DAILY
     Route: 048
     Dates: start: 20120105
  90. XALACOM [Suspect]
     Active Substance: LATANOPROST\TIMOLOL MALEATE
     Dosage: UNK UNK, QPM; TO RIGHT EYE AT NIGHT (2.5 ML)
     Route: 065
     Dates: start: 20150305
  91. XALACOM [Suspect]
     Active Substance: LATANOPROST\TIMOLOL MALEATE
     Dosage: UNK UNK, QPM; TO RIGHT EYE AT NIGHT (2.5 ML)
     Route: 065
     Dates: start: 20121112
  92. XALACOM [Suspect]
     Active Substance: LATANOPROST\TIMOLOL MALEATE
     Dosage: UNK UNK, QPM; TO RIGHT EYE AT NIGHT (2.5 ML)
     Route: 065
     Dates: start: 20110228
  93. XALACOM [Suspect]
     Active Substance: LATANOPROST\TIMOLOL MALEATE
     Dosage: UNK UNK, QPM; TO RIGHT EYE AT NIGHT (2.5 ML)
     Route: 065
     Dates: start: 20110120
  94. XALACOM [Suspect]
     Active Substance: LATANOPROST\TIMOLOL MALEATE
     Dosage: UNK UNK, QPM; TO RIGHT EYE AT NIGHT (2.5 ML)
     Route: 065
     Dates: start: 20140909
  95. CLIMESSE [Suspect]
     Active Substance: ESTRADIOL VALERATE\NORETHINDRONE
     Dosage: UNK UNK, DAILY
     Route: 048
     Dates: start: 20081006
  96. CLIMESSE [Suspect]
     Active Substance: ESTRADIOL VALERATE\NORETHINDRONE
     Dosage: UNK UNK, DAILY
     Route: 048
     Dates: start: 20060620
  97. CLIMESSE [Suspect]
     Active Substance: ESTRADIOL VALERATE\NORETHINDRONE
     Dosage: UNK
     Route: 048
     Dates: start: 20130509
  98. CLIMESSE [Suspect]
     Active Substance: ESTRADIOL VALERATE\NORETHINDRONE
     Dosage: UNK UNK, DAILY
     Route: 048
     Dates: start: 20120612
  99. CLIMESSE [Suspect]
     Active Substance: ESTRADIOL VALERATE\NORETHINDRONE
     Dosage: UNK UNK, DAILY
     Route: 048
     Dates: start: 20010319
  100. KLIOFEM [Suspect]
     Active Substance: ESTRADIOL\NORETHINDRONE ACETATE
     Indication: PRODUCT USED FOR UNKNOWN INDICATION
     Dosage: UNK UNK, DAILY
     Route: 065
     Dates: start: 20010207
  101. XALACOM [Suspect]
     Active Substance: LATANOPROST\TIMOLOL MALEATE
     Dosage: UNK UNK, QPM; TO RIGHT EYE AT NIGHT (2.5 ML)
     Route: 065
     Dates: start: 20150501
  102. XALACOM [Suspect]
     Active Substance: LATANOPROST\TIMOLOL MALEATE
     Dosage: UNK UNK, QPM; TO RIGHT EYE AT NIGHT (2.5 ML)
     Route: 065
     Dates: start: 20050607
  103. XALACOM [Suspect]
     Active Substance: LATANOPROST\TIMOLOL MALEATE
     Dosage: UNK UNK, QPM; TO RIGHT EYE AT NIGHT (2.5 ML)
     Route: 065
     Dates: start: 20141230
  104. XALACOM [Suspect]
     Active Substance: LATANOPROST\TIMOLOL MALEATE
     Dosage: UNK UNK, QPM; TO RIGHT EYE AT NIGHT (2.5 ML)
     Route: 065
     Dates: start: 20150917
  105. XALACOM [Suspect]
     Active Substance: LATANOPROST\TIMOLOL MALEATE
     Dosage: UNK UNK, QPM; TO RIGHT EYE AT NIGHT (2.5 ML)
     Route: 065
     Dates: start: 20130206
  106. XALACOM [Suspect]
     Active Substance: LATANOPROST\TIMOLOL MALEATE
     Dosage: UNK UNK, QPM; TO RIGHT EYE AT NIGHT (2.5 ML)
     Route: 065
     Dates: start: 20101224, end: 20141020
  107. XALACOM [Suspect]
     Active Substance: LATANOPROST\TIMOLOL MALEATE
     Dosage: UNK UNK, QPM; TO RIGHT EYE AT NIGHT (2.5 ML)
     Route: 065
     Dates: start: 20110321

REACTIONS (7)
  - Multiple sclerosis [Not Recovered/Not Resolved]
  - Glaucoma [Not Recovered/Not Resolved]
  - Seborrhoeic keratosis [Not Recovered/Not Resolved]
  - Haemorrhoids [Not Recovered/Not Resolved]
  - Finger deformity [Unknown]
  - Facial paralysis [Recovered/Resolved]
  - Normal tension glaucoma [Not Recovered/Not Resolved]

NARRATIVE: CASE EVENT DATE: 20021101
